FAERS Safety Report 9207886 (Version 2)
Quarter: 2013Q2

REPORT INFORMATION
  Report Type: Spontaneous
  Country: CZ (occurrence: CZ)
  Receive Date: 20130403
  Receipt Date: 20130410
  Transmission Date: 20140414
  Serious: Yes (Other)
  Sender: FDA-Public Use
  Company Number: CZ-GLAXOSMITHKLINE-B0879881A

PATIENT
  Age: 55 Year
  Sex: Female
  Weight: 84 kg

DRUGS (2)
  1. VOTRIENT [Suspect]
     Indication: RENAL CANCER
     Dosage: 800MG PER DAY
     Route: 048
     Dates: start: 20120622, end: 20120805
  2. EUTHYROX [Concomitant]
     Indication: HYPOTHYROIDISM

REACTIONS (7)
  - Infarction [Recovered/Resolved with Sequelae]
  - Lacunar infarction [Unknown]
  - Nausea [Recovered/Resolved]
  - Headache [Recovered/Resolved]
  - Vertigo [Recovered/Resolved]
  - Diarrhoea [Recovered/Resolved]
  - Palmar-plantar erythrodysaesthesia syndrome [Unknown]
